FAERS Safety Report 9283364 (Version 2)
Quarter: 2014Q2

REPORT INFORMATION
  Report Type: Spontaneous
  Country: US (occurrence: US)
  Receive Date: 20130510
  Receipt Date: 20140508
  Transmission Date: 20141212
  Serious: No
  Sender: FDA-Public Use
  Company Number: US-GLAXOSMITHKLINE-A1000961A

PATIENT
  Age: 63 Year
  Sex: Female

DRUGS (1)
  1. TYKERB [Suspect]
     Indication: PRODUCT USED FOR UNKNOWN INDICATION
     Dosage: 250MG SEE DOSAGE TEXT
     Route: 048
     Dates: start: 201204

REACTIONS (3)
  - Lactose intolerance [Recovering/Resolving]
  - Onychoclasis [Unknown]
  - Diarrhoea [Recovering/Resolving]
